FAERS Safety Report 17597058 (Version 1)
Quarter: 2020Q1

REPORT INFORMATION
  Report Type: Spontaneous
  Country: FR (occurrence: FR)
  Receive Date: 20200330
  Receipt Date: 20200330
  Transmission Date: 20200409
  Serious: Yes (Death, Other)
  Sender: FDA-Public Use
  Company Number: FR-GLAXOSMITHKLINE-FR2020052822

PATIENT
  Age: 78 Year
  Sex: Male
  Weight: 65 kg

DRUGS (11)
  1. CARBOPLATINE [Concomitant]
     Active Substance: CARBOPLATIN
     Indication: NEOPLASM MALIGNANT
     Dosage: CYCLICAL
     Route: 041
     Dates: start: 20200210, end: 20200210
  2. BACTRIM [Concomitant]
     Active Substance: SULFAMETHOXAZOLE\TRIMETHOPRIM
     Indication: DYSPNOEA
     Dosage: 1 DF, QD
     Route: 048
     Dates: start: 20200204
  3. INNOHEP [Concomitant]
     Active Substance: TINZAPARIN SODIUM
     Indication: THROMBOSIS PROPHYLAXIS
     Dosage: 12000 IU, QD
     Route: 058
     Dates: start: 20200204, end: 20200214
  4. TAMIFLU [Concomitant]
     Active Substance: OSELTAMIVIR PHOSPHATE
     Indication: INFLUENZA
     Dosage: UNKNOWN
     Route: 048
     Dates: start: 20200214
  5. FLUTICASONE FUROATE [Suspect]
     Active Substance: FLUTICASONE FUROATE
     Indication: DYSPNOEA
     Dosage: 100 ?G, QD
     Route: 055
     Dates: start: 20200204
  6. DOCETAXEL. [Concomitant]
     Active Substance: DOCETAXEL
     Indication: NEOPLASM MALIGNANT
     Dosage: 70 MG, QD
     Route: 041
     Dates: start: 20200210, end: 20200210
  7. SYMBICORT [Interacting]
     Active Substance: BUDESONIDE\FORMOTEROL FUMARATE DIHYDRATE
     Indication: DYSPNOEA
     Dosage: 2 DF, QD
     Route: 055
     Dates: start: 20200204
  8. MONTELUKAST SODIUM. [Concomitant]
     Active Substance: MONTELUKAST SODIUM
     Indication: DYSPNOEA
     Dosage: 10 MG, QD
     Route: 048
     Dates: start: 20200204
  9. SOLUPRED (PREDNISOLONE) [Interacting]
     Active Substance: PREDNISOLONE
     Indication: DYSPNOEA
     Dosage: 80 MG, QD
     Route: 048
     Dates: start: 20200204
  10. FLUOROURACILE [Concomitant]
     Active Substance: FLUOROURACIL
     Indication: NEOPLASM MALIGNANT
     Dosage: CYCLICAL
     Route: 041
     Dates: start: 20200210, end: 20200212
  11. HEPARINE SODIUM [Concomitant]
     Active Substance: HEPARIN SODIUM
     Indication: THROMBOSIS PROPHYLAXIS
     Dosage: UNKNOWN
     Route: 041
     Dates: start: 20200214, end: 20200227

REACTIONS (1)
  - Duodenal ulcer haemorrhage [Fatal]

NARRATIVE: CASE EVENT DATE: 20200218
